FAERS Safety Report 7018523-8 (Version None)
Quarter: 2010Q3

REPORT INFORMATION
  Report Type: 
  Country: None (occurrence: None)
  Receive Date: 20100928
  Receipt Date: 20100922
  Transmission Date: 20110219
  Serious: Yes (Other)
  Sender: FDA-Public Use
  Company Number: US-AMGEN-KDL435673

PATIENT
  Sex: Male

DRUGS (1)
  1. ENBREL [Suspect]
     Indication: PSORIASIS
     Route: 058
     Dates: start: 20080101, end: 20100902

REACTIONS (4)
  - EYE INFECTION FUNGAL [None]
  - HISTOPLASMOSIS [None]
  - ORAL INFECTION [None]
  - PSORIASIS [None]
